FAERS Safety Report 8514737-6 (Version None)
Quarter: 2012Q3

REPORT INFORMATION
  Report Type: 
  Country: None (occurrence: None)
  Receive Date: 20120711
  Receipt Date: 20120711
  Transmission Date: 20120928
  Serious: Yes (Death)
  Sender: FDA-Public Use
  Company Number: None

PATIENT
  Age: 75 Year
  Sex: Male
  Weight: 91.173 kg

DRUGS (7)
  1. FLOMAX [Concomitant]
  2. LASIX [Concomitant]
  3. ZOCOR [Concomitant]
  4. VITAMIN D [Concomitant]
  5. PRADAXA [Suspect]
     Indication: ATRIAL FIBRILLATION
     Dosage: 150MG BID PO
     Route: 048
     Dates: start: 20110616, end: 20120623
  6. COREG [Concomitant]
  7. ALLOPURINOL [Concomitant]

REACTIONS (1)
  - CEREBRAL HAEMORRHAGE [None]
